FAERS Safety Report 4428919-6 (Version None)
Quarter: 2004Q3

REPORT INFORMATION
  Report Type: 
  Country: None (occurrence: None)
  Receive Date: 20040816
  Receipt Date: 20040803
  Transmission Date: 20050211
  Serious: Yes (Other)
  Sender: FDA-Public Use
  Company Number: 2004052638

PATIENT
  Age: 62 Year
  Sex: Female

DRUGS (8)
  1. VIAGRA [Suspect]
     Indication: PULMONARY HYPERTENSION
     Dosage: 150 MG (50 MG, 3 IN 1 D)
     Dates: start: 20031118, end: 20040413
  2. BOSENTAN [Suspect]
     Indication: PULMONARY HYPERTENSION
     Dosage: 125 MG (62.5 MG, 2 IN 1 D), ORAL
     Route: 048
     Dates: start: 20021001, end: 20040213
  3. FUROSEMIDE [Concomitant]
  4. WARFARIN (WARFARIN) [Concomitant]
  5. SILYMARIN (SILYMARIN) [Concomitant]
  6. LEVOTHYROXINE SODIUM [Concomitant]
  7. SPIRONOLACTONE [Concomitant]
  8. URSODEOXYCHOLIC ACID (URSODEOXYCHOLIC ACID) [Concomitant]

REACTIONS (15)
  - BLOOD CREATININE INCREASED [None]
  - BLOOD UREA INCREASED [None]
  - CHOLESTASIS [None]
  - DERMATITIS [None]
  - FLUID OVERLOAD [None]
  - FLUID RETENTION [None]
  - HAEMATOCRIT DECREASED [None]
  - HAEMOGLOBIN DECREASED [None]
  - HEPATIC CONGESTION [None]
  - HEPATIC FUNCTION ABNORMAL [None]
  - HEPATITIS ACUTE [None]
  - HYPERKALAEMIA [None]
  - HYPONATRAEMIA [None]
  - RASH [None]
  - WEIGHT DECREASED [None]
